FAERS Safety Report 10171805 (Version 2)
Quarter: 2014Q3

REPORT INFORMATION
  Report Type: Spontaneous
  Country: US (occurrence: None)
  Receive Date: 20140512
  Receipt Date: 20140821
  Transmission Date: 20150326
  Serious: Yes (Other)
  Sender: FDA-Public Use
  Company Number: 2014P1003746

PATIENT
  Age: 45 Year
  Sex: Female

DRUGS (2)
  1. MYORISAN [Suspect]
     Active Substance: ISOTRETINOIN
     Dates: start: 20130820, end: 201403
  2. COMBINATION ORAL CONTRACEPTIVE [Concomitant]

REACTIONS (4)
  - Maternal exposure timing unspecified [None]
  - Drug administration error [None]
  - Drug dose omission [None]
  - Self-medication [None]

NARRATIVE: CASE EVENT DATE: 201403
